FAERS Safety Report 5600189-2 (Version None)
Quarter: 2008Q1

REPORT INFORMATION
  Report Type: 
  Country: None (occurrence: None)
  Receive Date: 20080123
  Receipt Date: 20080116
  Transmission Date: 20080703
  Serious: Yes (Other)
  Sender: FDA-Public Use
  Company Number: ES-ROCHE-370360

PATIENT
  Age: 53 Year
  Sex: Male

DRUGS (5)
  1. MYCOPHENOLATE MOFETIL [Suspect]
     Dosage: FREQUENCY REPORTED AS : DAY AS PER PROTOCOL : 1 GRAM BID
     Route: 048
     Dates: start: 20040601
  2. DACLIZUMAB [Suspect]
     Route: 042
     Dates: start: 20040601
  3. SIROLIMUS [Suspect]
     Route: 048
     Dates: start: 20040601, end: 20040602
  4. PREDNISONE [Suspect]
     Dosage: FREQUENCY REPORTED AS : DAY
     Route: 048
     Dates: start: 20040602
  5. ASPIRIN [Suspect]
     Indication: DRUG USE FOR UNKNOWN INDICATION
     Route: 065
     Dates: end: 20040601

REACTIONS (3)
  - GRAFT THROMBOSIS [None]
  - HYPOTENSION [None]
  - POST PROCEDURAL HAEMORRHAGE [None]
